FAERS Safety Report 8565564-5 (Version None)
Quarter: 2012Q3

REPORT INFORMATION
  Report Type: 
  Country: None (occurrence: None)
  Receive Date: 20120803
  Receipt Date: 20120724
  Transmission Date: 20120928
  Serious: Yes (Other)
  Sender: FDA-Public Use
  Company Number: GB-JNJFOC-20120504554

PATIENT
  Age: 59 Year
  Sex: Male

DRUGS (1)
  1. RISPERDAL [Suspect]
     Indication: PRODUCT USED FOR UNKNOWN INDICATION
     Route: 048
     Dates: start: 20091001, end: 20100301

REACTIONS (13)
  - DISCOMFORT [None]
  - DYSKINESIA [None]
  - PAIN [None]
  - FATIGUE [None]
  - MULTI-ORGAN DISORDER [None]
  - GENERAL PHYSICAL HEALTH DETERIORATION [None]
  - HEADACHE [None]
  - FEELING ABNORMAL [None]
  - RESPIRATORY DISORDER [None]
  - BURNING SENSATION [None]
  - INADEQUATE DIET [None]
  - RASH [None]
  - MEMORY IMPAIRMENT [None]
